FAERS Safety Report 5361596-9 (Version None)
Quarter: 2007Q2

REPORT INFORMATION
  Report Type: 
  Country: None (occurrence: None)
  Receive Date: 20070615
  Receipt Date: 20070615
  Transmission Date: 20071010
  Serious: No
  Sender: FDA-Public Use
  Company Number: None

PATIENT
  Age: 28 Year
  Sex: Female
  Weight: 81.6475 kg

DRUGS (1)
  1. SENSORCAINE [Suspect]
     Indication: CAPILLARY LEAK SYNDROME
     Dosage: 11MG IT
     Route: 037
     Dates: start: 20070606

REACTIONS (3)
  - ANAESTHETIC COMPLICATION [None]
  - PHARMACEUTICAL PRODUCT COMPLAINT [None]
  - PROCEDURAL HYPOTENSION [None]
